FAERS Safety Report 9551882 (Version 1)
Quarter: 2013Q3

REPORT INFORMATION
  Report Type: Spontaneous
  Country: US (occurrence: None)
  Receive Date: 20130923
  Receipt Date: 20130923
  Transmission Date: 20140515
  Serious: Yes (Hospitalization, Other)
  Sender: FDA-Public Use
  Company Number: 2013-US-000836

PATIENT
  Age: 40 Year
  Sex: Female
  Weight: 54.9 kg

DRUGS (2)
  1. XYREM [Suspect]
     Route: 048
     Dates: start: 20120123, end: 201206
  2. PAXIL (PAROXETINE HYDROCHLORIDE) [Concomitant]

REACTIONS (2)
  - Ovarian cyst [None]
  - Therapeutic response unexpected [None]
